FAERS Safety Report 6360779-9 (Version None)
Quarter: 2009Q3

REPORT INFORMATION
  Report Type: 
  Country: None (occurrence: None)
  Receive Date: 20090918
  Receipt Date: 20090908
  Transmission Date: 20100115
  Serious: Yes (Hospitalization)
  Sender: FDA-Public Use
  Company Number: US-WYE-H10091709

PATIENT
  Sex: Female
  Weight: 80.81 kg

DRUGS (3)
  1. PRISTIQ [Suspect]
     Indication: ANXIETY
     Route: 048
     Dates: start: 20090401, end: 20090708
  2. PRISTIQ [Suspect]
     Indication: DEPRESSION
  3. ATENOLOL [Concomitant]
     Indication: HYPERTENSION
     Dosage: UNKNOWN DAILY DOSE

REACTIONS (4)
  - CONDITION AGGRAVATED [None]
  - DECREASED APPETITE [None]
  - MIGRAINE [None]
  - WEIGHT DECREASED [None]
